FAERS Safety Report 12876928 (Version 1)
Quarter: 2016Q4

REPORT INFORMATION
  Report Type: Spontaneous
  Country: US (occurrence: US)
  Receive Date: 20161021
  Receipt Date: 20161021
  Transmission Date: 20170207
  Serious: Yes (Other)
  Sender: FDA-Public Use
  Company Number: None

PATIENT
  Age: 23 Year
  Sex: Female
  Weight: 20.43 kg

DRUGS (4)
  1. LEVALBUTEROL. [Suspect]
     Active Substance: LEVALBUTEROL
     Indication: ASTHMA
     Dosage: 0.63MG TID PRN WHEEZING NEBULIZED
     Dates: start: 2010
  2. LEVALBUTEROL. [Suspect]
     Active Substance: LEVALBUTEROL
     Indication: NERVOUS SYSTEM DISORDER
     Dosage: 0.63MG TID PRN WHEEZING NEBULIZED
     Dates: start: 2010
  3. LEVALBUTEROL. [Suspect]
     Active Substance: LEVALBUTEROL
     Indication: ASPIRATION
     Dosage: 0.63MG TID PRN WHEEZING NEBULIZED
     Dates: start: 2010
  4. LEVALBUTEROL. [Suspect]
     Active Substance: LEVALBUTEROL
     Indication: GASTROOESOPHAGEAL REFLUX DISEASE
     Dosage: 0.63MG TID PRN WHEEZING NEBULIZED
     Dates: start: 2010

REACTIONS (2)
  - Product substitution issue [None]
  - Seizure [None]

NARRATIVE: CASE EVENT DATE: 20100101
